FAERS Safety Report 21898101 (Version 1)
Quarter: 2023Q1

REPORT INFORMATION
  Report Type: Spontaneous
  Country: US (occurrence: US)
  Receive Date: 20230123
  Receipt Date: 20230123
  Transmission Date: 20230417
  Serious: Yes (Hospitalization)
  Sender: FDA-Public Use
  Company Number: US-MYLANLABS-2023M1007050

PATIENT
  Age: 72 Year
  Sex: Female

DRUGS (2)
  1. MIDODRINE [Suspect]
     Active Substance: MIDODRINE
     Indication: Dialysis hypotension
     Dosage: 15 MILLIGRAM, TID (THREE TIMES A DAY)
     Route: 065
  2. FLUDROCORTISONE [Suspect]
     Active Substance: FLUDROCORTISONE
     Indication: Dialysis hypotension
     Dosage: 0.2 MILLIGRAM
     Route: 065

REACTIONS (1)
  - Drug ineffective [Unknown]
